FAERS Safety Report 11838986 (Version 7)
Quarter: 2016Q1

REPORT INFORMATION
  Report Type: Spontaneous
  Country: CN (occurrence: CN)
  Receive Date: 20151216
  Receipt Date: 20160309
  Transmission Date: 20160525
  Serious: Yes (Death)
  Sender: FDA-Public Use
  Company Number: CN-ROCHE-1674687

PATIENT
  Age: 62 Year
  Sex: Male

DRUGS (2)
  1. ACTILYSE [Suspect]
     Active Substance: ALTEPLASE
     Indication: THERAPEUTIC PROCEDURE
     Dosage: 10% VIA INTRAVENOUS PUSH
     Route: 042
     Dates: start: 20150515, end: 20150515
  2. ACTILYSE [Suspect]
     Active Substance: ALTEPLASE
     Dosage: 90% VIA INTRAVENOUS PUSH
     Route: 041
     Dates: start: 20150515, end: 20150515

REACTIONS (2)
  - Brain stem haemorrhage [Fatal]
  - Multiple organ dysfunction syndrome [Fatal]

NARRATIVE: CASE EVENT DATE: 20150515
